FAERS Safety Report 18574723 (Version 10)
Quarter: 2021Q3

REPORT INFORMATION
  Report Type: Report from Study
  Country: CZ (occurrence: CZ)
  Receive Date: 20201203
  Receipt Date: 20210803
  Transmission Date: 20211014
  Serious: Yes (Death, Hospitalization)
  Sender: FDA-Public Use
  Company Number: CZ-EISAI MEDICAL RESEARCH-EC-2020-084625

PATIENT
  Age: 14 Year
  Sex: Male
  Weight: 44.1 kg

DRUGS (11)
  1. LENVATINIB [Suspect]
     Active Substance: LENVATINIB
     Indication: EWING^S SARCOMA
  2. SULFAMETHOXAZOLE;TRIMETHOPRIM [Concomitant]
     Active Substance: SULFAMETHOXAZOLE\TRIMETHOPRIM
     Dates: start: 20191029, end: 20201110
  3. TRAMAL [Concomitant]
     Active Substance: TRAMADOL
     Dates: start: 20200713, end: 20201109
  4. MAGNOSOLV [Concomitant]
     Active Substance: MAGNESIUM CARBONATE\MAGNESIUM OXIDE
     Dates: start: 20201015, end: 20201109
  5. POTASSIUM PHOSPHATE MONOBASIC [Concomitant]
     Active Substance: POTASSIUM PHOSPHATE, MONOBASIC
     Dates: start: 20200921
  6. POTASSIUM CHLORIDE. [Concomitant]
     Active Substance: POTASSIUM CHLORIDE
     Dates: start: 20200921, end: 20201109
  7. CALCICHEW [Concomitant]
     Active Substance: CALCIUM CARBONATE
     Dates: start: 20201015, end: 20201109
  8. ZOLOFT [Concomitant]
     Active Substance: SERTRALINE HYDROCHLORIDE
     Dates: start: 201910
  9. LENVATINIB [Suspect]
     Active Substance: LENVATINIB
     Indication: PERIPHERAL PRIMITIVE NEUROECTODERMAL TUMOUR OF SOFT TISSUE
     Dosage: 14 MILLIGRAM/SQ. METER, 12 CYCLES (FLUCTUATING DOSE)
     Route: 048
     Dates: start: 20201111, end: 20210107
  10. TRAMAL RETARD [Concomitant]
     Active Substance: TRAMADOL
     Route: 048
     Dates: start: 20201109, end: 20201202
  11. SUMETROLIM [Concomitant]
     Active Substance: SULFAMETHOXAZOLE\TRIMETHOPRIM
     Dates: start: 20201116, end: 20201208

REACTIONS (1)
  - Hyperbilirubinaemia [Recovered/Resolved]

NARRATIVE: CASE EVENT DATE: 20201119
